FAERS Safety Report 18571023 (Version 1)
Quarter: 2020Q4

REPORT INFORMATION
  Report Type: Spontaneous
  Country: US (occurrence: US)
  Receive Date: 20201202
  Receipt Date: 20201202
  Transmission Date: 20210114
  Serious: No
  Sender: FDA-Public Use
  Company Number: US-NOVEN PHARMACEUTICALS, INC.-2020US004165

PATIENT
  Sex: Female
  Weight: 58.5 kg

DRUGS (2)
  1. MINIVELLE [Suspect]
     Active Substance: ESTRADIOL
     Indication: ARTIFICIAL MENOPAUSE
     Dosage: 0.1 MG/ CHANGES AFTER 6 DAYS
     Route: 062
     Dates: start: 2015
  2. MINIVELLE [Suspect]
     Active Substance: ESTRADIOL
     Indication: OFF LABEL USE
     Dosage: 0.1 MG/ CHANGES AFTER 6 DAYS
     Route: 062

REACTIONS (2)
  - Intentional product use issue [Not Recovered/Not Resolved]
  - No adverse event [Unknown]
